FAERS Safety Report 13915691 (Version 1)
Quarter: 2017Q3

REPORT INFORMATION
  Report Type: Spontaneous
  Country: US (occurrence: US)
  Receive Date: 20170829
  Receipt Date: 20170829
  Transmission Date: 20171127
  Serious: No
  Sender: FDA-Public Use
  Company Number: US-MYLANLABS-2017M1017233

PATIENT
  Sex: Male
  Weight: 108.84 kg

DRUGS (1)
  1. CLONIDINE TRANSDERMAL SYSTEM [Suspect]
     Active Substance: CLONIDINE
     Indication: LABILE HYPERTENSION
     Dosage: 0.3 MG, QD, CHANGE Q 7 DAYS
     Route: 062
     Dates: start: 2016

REACTIONS (3)
  - Application site discharge [Not Recovered/Not Resolved]
  - Product adhesion issue [Not Recovered/Not Resolved]
  - Application site rash [Not Recovered/Not Resolved]
